FAERS Safety Report 9010807 (Version 2)
Quarter: 2013Q1

REPORT INFORMATION
  Report Type: Spontaneous
  Country: ES (occurrence: ES)
  Receive Date: 20130109
  Receipt Date: 20130117
  Transmission Date: 20140127
  Serious: Yes (Other)
  Sender: FDA-Public Use
  Company Number: ES-SANOFI-AVENTIS-2013SA000685

PATIENT
  Age: 86 Year
  Sex: Female

DRUGS (1)
  1. SEGURIL [Suspect]
     Indication: PRODUCT USED FOR UNKNOWN INDICATION
     Dosage: FORM: AMPOULE
     Route: 065
     Dates: start: 20121102, end: 20121102

REACTIONS (3)
  - Renal failure chronic [Unknown]
  - Condition aggravated [Unknown]
  - Medication error [Unknown]
